FAERS Safety Report 5025363-8 (Version None)
Quarter: 2006Q2

REPORT INFORMATION
  Report Type: 
  Country: None (occurrence: None)
  Receive Date: 20060426
  Receipt Date: 20060110
  Transmission Date: 20061013
  Serious: Yes (Other)
  Sender: FDA-Public Use
  Company Number: 2006006308

PATIENT
  Age: 51 Year
  Sex: Female
  Weight: 58.0604 kg

DRUGS (13)
  1. LYRICA [Suspect]
     Indication: EPILEPSY
     Dosage: 150 MG (75 MG,2 IN 1 D)
     Dates: start: 20060105, end: 20060108
  2. LYRICA [Suspect]
     Indication: NEUROPATHY
     Dosage: 150 MG (75 MG,2 IN 1 D)
     Dates: start: 20060105, end: 20060108
  3. DARVOCET (DEXTROPROPOXYPHENE ACETATE, PARACETAMOL) [Concomitant]
  4. FIORICET [Concomitant]
  5. ALBUTEROL [Concomitant]
  6. FLONASE [Concomitant]
  7. SYNTHROID [Concomitant]
  8. WELLBUTRIN XL [Concomitant]
  9. ALL OTHER THERAPEUTIC PRODUCTS (ALL OTHER THERAPEUTIC PRODUCTS) [Concomitant]
  10. CYCLOBENZAPRINE HCL [Concomitant]
  11. TOPAMAX [Concomitant]
  12. TRAZODONE HCL [Concomitant]
  13. TRANXENE-T (CLORAZEPATE DIPOTASSIUM) [Concomitant]

REACTIONS (3)
  - MIGRAINE [None]
  - MUSCLE SPASMS [None]
  - TREMOR [None]
